FAERS Safety Report 14274345 (Version 1)
Quarter: 2017Q4

REPORT INFORMATION
  Report Type: Spontaneous
  Country: JP (occurrence: JP)
  Receive Date: 20171211
  Receipt Date: 20171211
  Transmission Date: 20180321
  Serious: Yes (Death, Other)
  Sender: FDA-Public Use
  Company Number: JP-OTSUKA-JP-2013-11256

PATIENT
  Age: 64 Year
  Sex: Male
  Weight: 67.5 kg

DRUGS (40)
  1. SODIUM VALPROATE [Suspect]
     Active Substance: VALPROATE SODIUM
     Dosage: 200 MG, QD
     Route: 048
     Dates: start: 20110915, end: 20120119
  2. METHYCOBAL [Concomitant]
     Active Substance: METHYLCOBALAMIN
     Indication: PRODUCT USED FOR UNKNOWN INDICATION
     Dosage: 1500 ?G, QD
     Route: 048
     Dates: start: 20110808, end: 20130418
  3. RISPERIDONE. [Concomitant]
     Active Substance: RISPERIDONE
     Dosage: 2 MG, QD
     Route: 048
     Dates: start: 20120627, end: 20130425
  4. MILMAG [Concomitant]
     Active Substance: MAGNESIUM HYDROXIDE
     Dosage: 350 MG, SINGLE
     Route: 048
     Dates: start: 20130416, end: 20130425
  5. VEGETAMIN A [Concomitant]
     Active Substance: CHLORPROMAZINE HYDROCHLORIDE\PHENOBARBITAL\PROMETHAZINE
     Indication: PRODUCT USED FOR UNKNOWN INDICATION
     Dosage: 1 DF, SINGLE
     Route: 048
     Dates: start: 20130408, end: 20130423
  6. ABILIFY [Suspect]
     Active Substance: ARIPIPRAZOLE
     Indication: MANIA
     Dosage: 18 MG, QD
     Route: 048
     Dates: start: 20130314, end: 20130321
  7. LIMAS [Suspect]
     Active Substance: LITHIUM CARBONATE
     Dosage: 600 MG, QD
     Route: 048
     Dates: start: 20120709, end: 20130321
  8. SODIUM VALPROATE [Suspect]
     Active Substance: VALPROATE SODIUM
     Dosage: 200 MG, TID
     Route: 048
     Dates: start: 20110905, end: 20110912
  9. SODIUM VALPROATE [Suspect]
     Active Substance: VALPROATE SODIUM
     Dosage: 600 MG, QD
     Route: 048
     Dates: start: 20130418, end: 20130425
  10. AKINETON [Concomitant]
     Active Substance: BIPERIDEN HYDROCHLORIDE
     Indication: PRODUCT USED FOR UNKNOWN INDICATION
     Dosage: 3 MG, QD
     Route: 048
     Dates: start: 20120307, end: 20120610
  11. SOFMIN [Concomitant]
     Indication: PRODUCT USED FOR UNKNOWN INDICATION
     Dosage: 50 MG, SINGLE
     Route: 048
     Dates: start: 20130405, end: 20130422
  12. LIMAS [Suspect]
     Active Substance: LITHIUM CARBONATE
     Indication: PRODUCT USED FOR UNKNOWN INDICATION
     Dosage: 600 MG, QD
     Route: 048
     Dates: start: 20110808, end: 20120119
  13. LIMAS [Suspect]
     Active Substance: LITHIUM CARBONATE
     Dosage: 800 MG, QD
     Route: 048
     Dates: start: 20120120, end: 20120708
  14. SODIUM VALPROATE [Suspect]
     Active Substance: VALPROATE SODIUM
     Dosage: 200 MG, BID
     Route: 048
     Dates: start: 20110913, end: 20110914
  15. SODIUM VALPROATE [Suspect]
     Active Substance: VALPROATE SODIUM
     Dosage: 800 MG, QD
     Route: 048
     Dates: start: 20130404, end: 20130417
  16. BERIZYM [Concomitant]
     Active Substance: CELLULASE\DIASTASE\LIPASE
     Indication: PRODUCT USED FOR UNKNOWN INDICATION
     Dosage: 1.5 G, QD
     Route: 048
     Dates: start: 20110808, end: 20130418
  17. RISPERIDONE. [Concomitant]
     Active Substance: RISPERIDONE
     Dosage: 2 MG, QD
     Route: 048
     Dates: start: 20110913, end: 20120119
  18. ALLOPURINOL. [Concomitant]
     Active Substance: ALLOPURINOL
     Indication: PRODUCT USED FOR UNKNOWN INDICATION
     Dosage: 300 MG, QD
     Route: 048
     Dates: start: 20110808, end: 20130425
  19. SODIUM VALPROATE [Suspect]
     Active Substance: VALPROATE SODIUM
     Dosage: 200 MG, BID
     Route: 048
     Dates: start: 20120206, end: 20130403
  20. MARZULENE-S [Concomitant]
     Active Substance: SODIUM GUALENATE
     Indication: PRODUCT USED FOR UNKNOWN INDICATION
     Dosage: 2.0 G GRAM(S), DAILY DOSE
     Route: 048
     Dates: start: 20110808, end: 20130418
  21. LENDORMIN [Concomitant]
     Active Substance: BROTIZOLAM
     Indication: PRODUCT USED FOR UNKNOWN INDICATION
     Dosage: 0.25 MG, SINGLE
     Route: 048
     Dates: start: 20110808, end: 20130425
  22. PURSENNID [Concomitant]
     Active Substance: SENNOSIDES A AND B
     Dosage: 24 MG, SINGLE
     Route: 048
     Dates: start: 20120501, end: 20120604
  23. TAMSULOSIN HYDROCHLORIDE. [Concomitant]
     Active Substance: TAMSULOSIN HYDROCHLORIDE
     Indication: PRODUCT USED FOR UNKNOWN INDICATION
     Dosage: 0.2 MG, QD
     Route: 048
     Dates: start: 20120702, end: 20130425
  24. MILMAG [Concomitant]
     Active Substance: MAGNESIUM HYDROXIDE
     Indication: PRODUCT USED FOR UNKNOWN INDICATION
     Dosage: 1050 MG, SINGLE
     Route: 048
     Dates: start: 20130402, end: 20130415
  25. ROHYPNOL [Concomitant]
     Active Substance: FLUNITRAZEPAM
     Indication: PRODUCT USED FOR UNKNOWN INDICATION
     Dosage: UNK
     Route: 048
  26. SENNA [Concomitant]
     Active Substance: SENNA LEAF\SENNOSIDES\SENNOSIDES A AND B
     Indication: PRODUCT USED FOR UNKNOWN INDICATION
     Dosage: UNK
     Dates: start: 20110808, end: 20130425
  27. SODIUM VALPROATE [Suspect]
     Active Substance: VALPROATE SODIUM
     Dosage: 200 MG, TID
     Route: 048
     Dates: start: 20120120, end: 20120205
  28. RISPERIDONE. [Concomitant]
     Active Substance: RISPERIDONE
     Dosage: 2 MG, BID
     Route: 048
     Dates: start: 20120222, end: 20120626
  29. SHINLUCK [Concomitant]
     Active Substance: SODIUM PICOSULFATE
     Indication: PRODUCT USED FOR UNKNOWN INDICATION
     Dosage: 3 DF, SINGLE
     Route: 048
     Dates: start: 20110922, end: 20130425
  30. RISPERIDONE. [Concomitant]
     Active Substance: RISPERIDONE
     Indication: PRODUCT USED FOR UNKNOWN INDICATION
     Dosage: 6 MG, QD
     Route: 048
     Dates: start: 20110808, end: 20110912
  31. ABILIFY [Suspect]
     Active Substance: ARIPIPRAZOLE
     Dosage: 30 MG, QD
     Route: 048
     Dates: start: 20130322, end: 20130425
  32. RISPERIDONE. [Concomitant]
     Active Substance: RISPERIDONE
     Dosage: 6 MG, QD
     Route: 048
     Dates: start: 20120120, end: 20120221
  33. AKINETON [Concomitant]
     Active Substance: BIPERIDEN HYDROCHLORIDE
     Dosage: 1 MG, BID
     Route: 048
     Dates: start: 20120611, end: 20130425
  34. LIMAS [Suspect]
     Active Substance: LITHIUM CARBONATE
     Dosage: 800 MG, QD
     Route: 048
     Dates: start: 20130322, end: 20130425
  35. SODIUM VALPROATE [Suspect]
     Active Substance: VALPROATE SODIUM
     Indication: PRODUCT USED FOR UNKNOWN INDICATION
     Dosage: 800 MG, QD
     Route: 048
     Dates: start: 20110808, end: 20110904
  36. LAMISIL [Suspect]
     Active Substance: TERBINAFINE HYDROCHLORIDE
     Indication: PRODUCT USED FOR UNKNOWN INDICATION
     Dosage: 125 MG, QD
     Route: 048
     Dates: start: 20130415, end: 20130425
  37. EPL [Concomitant]
     Active Substance: LECITHIN
     Indication: PRODUCT USED FOR UNKNOWN INDICATION
     Dosage: 750 MG, QD
     Route: 048
     Dates: start: 20110808, end: 20130418
  38. MAGLAX [Concomitant]
     Active Substance: MAGNESIUM OXIDE
     Indication: PRODUCT USED FOR UNKNOWN INDICATION
     Dosage: 1.2 G, QD
     Route: 048
     Dates: start: 20110808, end: 20130425
  39. PURSENNID [Concomitant]
     Active Substance: SENNOSIDES A AND B
     Indication: PRODUCT USED FOR UNKNOWN INDICATION
     Dosage: 24 MG, SINGLE
     Route: 048
     Dates: start: 20110808, end: 20120402
  40. PURSENNID [Concomitant]
     Active Substance: SENNOSIDES A AND B
     Dosage: 48 MG, SINGLE
     Route: 048
     Dates: start: 20120605, end: 20130425

REACTIONS (5)
  - Urinary incontinence [Unknown]
  - Rhabdomyolysis [Fatal]
  - Sleep paralysis [Unknown]
  - Dyslalia [Unknown]
  - Cyanosis [Unknown]

NARRATIVE: CASE EVENT DATE: 20130409
